FAERS Safety Report 10096792 (Version 1)
Quarter: 2014Q2

REPORT INFORMATION
  Report Type: Spontaneous
  Country: FR (occurrence: FR)
  Receive Date: 20140422
  Receipt Date: 20140422
  Transmission Date: 20141212
  Serious: Yes (Hospitalization)
  Sender: FDA-Public Use
  Company Number: FR-WATSON-2014-07817

PATIENT
  Age: 53 Year
  Sex: Female

DRUGS (2)
  1. CARBOPLATINE ACTAVIS [Suspect]
     Indication: NON-SMALL CELL LUNG CANCER
     Dosage: 500 MG, TOTAL
     Route: 042
     Dates: start: 20140312, end: 20140312
  2. PACLITAXEL HOSPIRA [Suspect]
     Indication: NON-SMALL CELL LUNG CANCER
     Dosage: 300 MG, TOTAL
     Route: 042
     Dates: start: 20140312, end: 20140312

REACTIONS (7)
  - Abdominal pain [Recovered/Resolved]
  - Diarrhoea [Recovered/Resolved]
  - Cyanosis [Recovered/Resolved]
  - Nausea [Recovered/Resolved]
  - Erythema [Recovered/Resolved]
  - Back pain [Recovered/Resolved]
  - Hypersensitivity [Recovered/Resolved]
